FAERS Safety Report 8094195-9 (Version None)
Quarter: 2012Q1

REPORT INFORMATION
  Report Type: 
  Country: None (occurrence: None)
  Receive Date: 20120130
  Receipt Date: 20120130
  Transmission Date: 20120608
  Serious: Yes (Other)
  Sender: FDA-Public Use
  Company Number: None

PATIENT
  Age: 4 Year
  Sex: Female
  Weight: 15.875 kg

DRUGS (1)
  1. SINGULAIR [Suspect]
     Indication: RHINITIS
     Dosage: 4 MG
     Route: 048
     Dates: start: 20111101, end: 20120125

REACTIONS (7)
  - ABNORMAL BEHAVIOUR [None]
  - DECREASED APPETITE [None]
  - INSOMNIA [None]
  - AGITATION [None]
  - AGGRESSION [None]
  - RESTLESSNESS [None]
  - MOOD ALTERED [None]
